FAERS Safety Report 14393103 (Version 1)
Quarter: 2018Q1

REPORT INFORMATION
  Report Type: Report from Study
  Country: AR (occurrence: AR)
  Receive Date: 20180116
  Receipt Date: 20180116
  Transmission Date: 20180509
  Serious: Yes (Death, Hospitalization)
  Sender: FDA-Public Use
  Company Number: AR-R-PHARM US LLC-2018RPM00002

PATIENT
  Age: 55 Year
  Sex: Female

DRUGS (1)
  1. IXEMPRA [Suspect]
     Active Substance: IXABEPILONE
     Indication: BREAST CANCER METASTATIC
     Dosage: UNK, EVERY 3 WEEKS
     Route: 042
     Dates: start: 20171226, end: 20171229

REACTIONS (2)
  - Seizure [Unknown]
  - Death [Fatal]

NARRATIVE: CASE EVENT DATE: 201712
